FAERS Safety Report 5578610-8 (Version None)
Quarter: 2008Q1

REPORT INFORMATION
  Report Type: 
  Country: None (occurrence: None)
  Receive Date: 20080102
  Receipt Date: 20071226
  Transmission Date: 20080703
  Serious: Yes (Hospitalization)
  Sender: FDA-Public Use
  Company Number: JP-SP-2007-03904

PATIENT
  Age: 71 Year
  Sex: Male

DRUGS (3)
  1. IMMUCYST [Suspect]
     Indication: BLADDER CANCER
     Route: 043
     Dates: start: 20070912, end: 20071003
  2. FLAVOXATE HCL [Concomitant]
     Dates: start: 20061129
  3. TAMSULOSIN HCL [Concomitant]
     Dates: start: 20051212

REACTIONS (6)
  - DYSURIA [None]
  - FATIGUE [None]
  - PROSTATIC ABSCESS [None]
  - PROSTATITIS [None]
  - PYREXIA [None]
  - URINARY RETENTION [None]
